FAERS Safety Report 7776286-2 (Version None)
Quarter: 2011Q3

REPORT INFORMATION
  Report Type: 
  Country: None (occurrence: None)
  Receive Date: 20110926
  Receipt Date: 20110912
  Transmission Date: 20111222
  Serious: Yes (Other)
  Sender: FDA-Public Use
  Company Number: ES-RANBAXY-2011RR-48069

PATIENT
  Sex: Female

DRUGS (2)
  1. PYRIDOXINE HCL [Suspect]
     Indication: PRODUCT USED FOR UNKNOWN INDICATION
  2. RANITIDINE [Suspect]
     Indication: PRODUCT USED FOR UNKNOWN INDICATION

REACTIONS (2)
  - ACCIDENTAL EXPOSURE [None]
  - DERMATITIS CONTACT [None]
